FAERS Safety Report 15809021 (Version 4)
Quarter: 2020Q1

REPORT INFORMATION
  Report Type: Report from Study
  Country: US (occurrence: US)
  Receive Date: 20190110
  Receipt Date: 20200211
  Transmission Date: 20200409
  Serious: No
  Sender: FDA-Public Use
  Company Number: PHEH2019US000957

PATIENT
  Sex: Male

DRUGS (1)
  1. GILENYA [Suspect]
     Active Substance: FINGOLIMOD HYDROCHLORIDE
     Indication: MULTIPLE SCLEROSIS
     Dosage: 0.5 MG, QD
     Route: 048
     Dates: start: 20180201

REACTIONS (14)
  - Myalgia [Unknown]
  - Speech disorder [Unknown]
  - Dysarthria [Unknown]
  - Balance disorder [Unknown]
  - Back pain [Unknown]
  - Fatigue [Unknown]
  - Memory impairment [Unknown]
  - Swollen tongue [Unknown]
  - Headache [Unknown]
  - Dizziness [Unknown]
  - Urinary incontinence [Unknown]
  - Anal incontinence [Unknown]
  - Tremor [Recovering/Resolving]
  - Visual impairment [Not Recovered/Not Resolved]
